FAERS Safety Report 16527678 (Version 1)
Quarter: 2019Q3

REPORT INFORMATION
  Report Type: Report from Study
  Country: US (occurrence: US)
  Receive Date: 20190703
  Receipt Date: 20190703
  Transmission Date: 20191004
  Serious: Yes (Other)
  Sender: FDA-Public Use
  Company Number: US-TEVA-2019-US-1070396

PATIENT
  Age: 16 Year
  Sex: Male

DRUGS (8)
  1. PROTHIONAMIDE [Suspect]
     Active Substance: PROTIONAMIDE
     Indication: TUBERCULOSIS
     Dosage: THE INTENSIVE PHASE OF THE TREATMENT
     Route: 065
  2. LEVOFLOXACIN. [Suspect]
     Active Substance: LEVOFLOXACIN
     Indication: TUBERCULOSIS
     Dosage: THE INTENSIVE PHASE OF THE TREATMENT
     Route: 065
  3. LEVOFLOXACIN. [Suspect]
     Active Substance: LEVOFLOXACIN
     Dosage: THE CONTINUOUS PHASE OF THE TREATMENT
     Route: 065
  4. KANAMYCIN [Suspect]
     Active Substance: KANAMYCIN A SULFATE
     Indication: TUBERCULOSIS
     Dosage: THE INTENSIVE PHASE OF THE TREATMENT
     Route: 065
  5. ETHAMBUTOL [Suspect]
     Active Substance: ETHAMBUTOL HYDROCHLORIDE
     Indication: TUBERCULOSIS
     Dosage: THE INTENSIVE PHASE OF THE TREATMENT
     Route: 065
  6. PYRAZINAMIDE. [Suspect]
     Active Substance: PYRAZINAMIDE
     Indication: TUBERCULOSIS
     Dosage: THE INTENSIVE PHASE OF THE TREATMENT
     Route: 065
  7. ETHAMBUTOL [Suspect]
     Active Substance: ETHAMBUTOL HYDROCHLORIDE
     Dosage: THE CONTINUOUS PHASE OF THE TREATMENT
     Route: 065
  8. PROTHIONAMIDE [Suspect]
     Active Substance: PROTIONAMIDE
     Dosage: THE CONTINUOUS PHASE OF THE TREATMENT
     Route: 065

REACTIONS (1)
  - Hepatotoxicity [Recovered/Resolved]
